FAERS Safety Report 4429037-3 (Version None)
Quarter: 2004Q3

REPORT INFORMATION
  Report Type: 
  Country: None (occurrence: None)
  Receive Date: 20040726
  Receipt Date: 20040325
  Transmission Date: 20050211
  Serious: No
  Sender: FDA-Public Use
  Company Number: USA040361351

PATIENT
  Age: 93 Year
  Sex: Female
  Weight: 52 kg

DRUGS (5)
  1. FORTEO [Suspect]
     Indication: OSTEOPOROSIS
     Dosage: 20 UG DAY
     Dates: start: 20040101, end: 20040306
  2. OXYCONTIN [Concomitant]
  3. HYZAAR [Concomitant]
  4. CARDIZEM [Concomitant]
  5. PREDNISONE [Concomitant]

REACTIONS (5)
  - DIZZINESS [None]
  - FALL [None]
  - NAUSEA [None]
  - SKIN LACERATION [None]
  - VOMITING [None]
